FAERS Safety Report 6904183-0 (Version None)
Quarter: 2010Q3

REPORT INFORMATION
  Report Type: 
  Country: None (occurrence: None)
  Receive Date: 20100804
  Receipt Date: 20090324
  Transmission Date: 20110219
  Serious: Yes (Other)
  Sender: FDA-Public Use
  Company Number: US-PFIZER INC-2009176206

PATIENT
  Sex: Female
  Weight: 122.45 kg

DRUGS (4)
  1. LYRICA [Suspect]
     Indication: PERIPHERAL NERVE INJURY
     Dosage: UNK
     Route: 048
     Dates: start: 20080601, end: 20090225
  2. DETROL LA [Concomitant]
     Dosage: UNK
  3. FUROSEMIDE [Concomitant]
     Dosage: 20 MG, 1X/DAY
  4. ACETYLSALICYLIC ACID [Concomitant]
     Dosage: UNK

REACTIONS (5)
  - HYPOAESTHESIA ORAL [None]
  - PARAESTHESIA ORAL [None]
  - PHARYNGEAL OEDEMA [None]
  - SWOLLEN TONGUE [None]
  - WHEEZING [None]
